FAERS Safety Report 7086197-6 (Version None)
Quarter: 2010Q4

REPORT INFORMATION
  Report Type: 
  Country: None (occurrence: None)
  Receive Date: 20101026
  Receipt Date: 20101011
  Transmission Date: 20110411
  Serious: Yes (Hospitalization)
  Sender: FDA-Public Use
  Company Number: 2010004342

PATIENT
  Age: 73 Year
  Sex: Male

DRUGS (1)
  1. TARCEVA [Suspect]
     Indication: PRODUCT USED FOR UNKNOWN INDICATION
     Dosage: (100 MG, QD), ORAL
     Route: 048
     Dates: start: 20100919

REACTIONS (3)
  - EPISTAXIS [None]
  - HAEMORRHAGE [None]
  - RASH [None]
